FAERS Safety Report 13473621 (Version 1)
Quarter: 2017Q2

REPORT INFORMATION
  Report Type: Report from Study
  Country: SG (occurrence: SG)
  Receive Date: 20170424
  Receipt Date: 20170424
  Transmission Date: 20170830
  Serious: Yes (Hospitalization)
  Sender: FDA-Public Use
  Company Number: SG-ASTRAZENECA-2017SE41081

PATIENT
  Age: 46 Year
  Sex: Male

DRUGS (8)
  1. EZETIMIBE. [Concomitant]
     Active Substance: EZETIMIBE
  2. ROSUVASTATIN. [Concomitant]
     Active Substance: ROSUVASTATIN
  3. ACETYLSALICYLIC ACID [Suspect]
     Active Substance: ASPIRIN
     Indication: ACUTE CORONARY SYNDROME
     Dosage: MAINTENANCE THERAPY WHICH STARTED PRIOR TO INDEX PROCEDURE, NON AZ PRODUCT
     Route: 048
     Dates: end: 20141109
  4. BISOPROLOL [Concomitant]
     Active Substance: BISOPROLOL
  5. OMEPRAZOLE. [Concomitant]
     Active Substance: OMEPRAZOLE
  6. TICAGRELOR [Suspect]
     Active Substance: TICAGRELOR
     Indication: ACUTE CORONARY SYNDROME
     Route: 048
     Dates: start: 20141009, end: 20161008
  7. ACETYLSALICYLIC ACID [Suspect]
     Active Substance: ASPIRIN
     Indication: ACUTE CORONARY SYNDROME
     Route: 048
     Dates: start: 20161009
  8. ENALAPRIL [Concomitant]
     Active Substance: ENALAPRIL

REACTIONS (2)
  - Coronary artery disease [Recovered/Resolved with Sequelae]
  - Coronary artery occlusion [Recovered/Resolved with Sequelae]

NARRATIVE: CASE EVENT DATE: 20170112
